FAERS Safety Report 6972797-8 (Version None)
Quarter: 2010Q3

REPORT INFORMATION
  Report Type: 
  Country: None (occurrence: None)
  Receive Date: 20100909
  Receipt Date: 20100830
  Transmission Date: 20110219
  Serious: Yes (Other)
  Sender: FDA-Public Use
  Company Number: US-PFIZER INC-2010089978

PATIENT
  Sex: Female
  Weight: 97.5 kg

DRUGS (9)
  1. LYRICA [Suspect]
     Indication: FIBROMYALGIA
     Dosage: 75 MG, 1X/DAY
     Dates: start: 20100702, end: 20100709
  2. LYRICA [Suspect]
     Dosage: 75 MG, 2X/DAY
     Dates: start: 20100709
  3. CLONAZEPAM [Concomitant]
     Indication: ANXIETY
     Dosage: 0.5 MG, AS NEEDED
  4. METHADONE [Concomitant]
     Dosage: 5 MG, 2X/DAY
  5. PRAVASTATIN [Concomitant]
     Dosage: 40 MG, 1X/DAY
  6. ADVIL LIQUI-GELS [Concomitant]
     Dosage: 75 MG, 1X/DAY
  7. DILTIAZEM [Concomitant]
     Indication: HYPERTENSION
     Dosage: 120 MG, 2X/DAY
  8. DILTIAZEM [Concomitant]
     Indication: RAYNAUD'S PHENOMENON
  9. PAXIL [Concomitant]
     Dosage: 50 MG, 1X/DAY

REACTIONS (3)
  - PAIN IN EXTREMITY [None]
  - RASH [None]
  - SWELLING [None]
